FAERS Safety Report 10637718 (Version 5)
Quarter: 2015Q1

REPORT INFORMATION
  Report Type: Report from Study
  Country: DE (occurrence: DE)
  Receive Date: 20141208
  Receipt Date: 20150109
  Transmission Date: 20150720
  Serious: Yes (Other)
  Sender: FDA-Public Use
  Company Number: PHHY2014DE157101

PATIENT
  Sex: Male

DRUGS (2)
  1. EXTAVIA [Suspect]
     Active Substance: INTERFERON BETA-1B
     Dosage: 250 UG/ML, QOD
     Route: 058
     Dates: end: 20141130
  2. EXTAVIA [Suspect]
     Active Substance: INTERFERON BETA-1B
     Indication: MULTIPLE SCLEROSIS
     Dosage: 62.5 UG/ML, QOD
     Route: 058
     Dates: start: 20141126

REACTIONS (5)
  - Bladder dysfunction [Recovering/Resolving]
  - Nasal discomfort [Not Recovered/Not Resolved]
  - Urinary retention [Recovering/Resolving]
  - Influenza like illness [Not Recovered/Not Resolved]
  - Limb discomfort [Not Recovered/Not Resolved]
